FAERS Safety Report 5501571-4 (Version None)
Quarter: 2007Q4

REPORT INFORMATION
  Report Type: 
  Country: None (occurrence: None)
  Receive Date: 20071030
  Receipt Date: 20071026
  Transmission Date: 20080405
  Serious: Yes (Death)
  Sender: FDA-Public Use
  Company Number: GB-BRISTOL-MYERS SQUIBB COMPANY-13946587

PATIENT

DRUGS (7)
  1. ETOPOSIDE [Suspect]
     Indication: GERM CELL CANCER
     Dosage: 90MG/M2DAYS 1-4 OVER2H:METHOTREXATE LOADING DOSE OVER 30MIN FOLLOWED BY 12HINFUSION
  2. CISPLATIN [Suspect]
     Indication: GERM CELL CANCER
     Dosage: 50MG/M2 OVER 4 H DAYS 3 AND 4.
  3. METHOTREXATE [Suspect]
     Indication: GERM CELL CANCER
  4. DACTINOMYCIN [Suspect]
     Indication: GERM CELL CANCER
     Dosage: 1(MG/M2)DAY
  5. CARBOPLATIN [Concomitant]
  6. NEUPOGEN [Concomitant]
     Dosage: IT WAS STARTED ON DAY 4 AND CONTINUED UNTIL WBC}3.
  7. LEUCOVORIN [Concomitant]

REACTIONS (1)
  - SEPSIS [None]
